FAERS Safety Report 4472871-4 (Version None)
Quarter: 2004Q4

REPORT INFORMATION
  Report Type: 
  Country: None (occurrence: None)
  Receive Date: 20041012
  Receipt Date: 20041012
  Transmission Date: 20050328
  Serious: Yes (Other)
  Sender: FDA-Public Use
  Company Number: None

PATIENT
  Age: 53 Year
  Sex: Female
  Weight: 74.8 kg

DRUGS (2)
  1. FOSINOPRIL [Suspect]
     Indication: DIABETES MELLITUS
     Dosage: 40 MG, 40 MG QD ORAL
     Route: 048
     Dates: start: 20030929, end: 20040701
  2. FOSINOPRIL [Suspect]
     Indication: HYPERTENSION
     Dosage: 40 MG, 40 MG QD ORAL
     Route: 048
     Dates: start: 20030929, end: 20040701

REACTIONS (2)
  - ANGIONEUROTIC OEDEMA [None]
  - RASH [None]
